FAERS Safety Report 8829861 (Version 1)
Quarter: 2012Q4

REPORT INFORMATION
  Report Type: Spontaneous
  Country: US (occurrence: None)
  Receive Date: 20121005
  Receipt Date: 20121005
  Transmission Date: 20130627
  Serious: Yes (Other)
  Sender: FDA-Public Use
  Company Number: None

PATIENT
  Age: 65 Year
  Sex: Female
  Weight: 58.97 kg

DRUGS (1)
  1. CYMBALTA [Suspect]
     Indication: ADVERSE EVENT
     Route: 048
     Dates: start: 20120326, end: 20120512

REACTIONS (11)
  - Mental impairment [None]
  - Hyperhidrosis [None]
  - Heart rate increased [None]
  - Balance disorder [None]
  - Headache [None]
  - Dry mouth [None]
  - Blood pressure increased [None]
  - Constipation [None]
  - Vision blurred [None]
  - Logorrhoea [None]
  - Gastrointestinal haemorrhage [None]
